FAERS Safety Report 4375734-8 (Version None)
Quarter: 2004Q2

REPORT INFORMATION
  Report Type: 
  Country: None (occurrence: None)
  Receive Date: 20040607
  Receipt Date: 20040602
  Transmission Date: 20050107
  Serious: Yes (Death)
  Sender: FDA-Public Use
  Company Number: 2004-116313-NL

PATIENT
  Age: 79 Year
  Sex: Female

DRUGS (13)
  1. DANAPAROID SODIUM [Suspect]
     Indication: DISSEMINATED INTRAVASCULAR COAGULATION
     Dosage: 2500 ANTI_XA INTRAVENOUS (NOS)
     Route: 042
     Dates: start: 20030708, end: 20030710
  2. DOPAMINE HYDROCHLORIDE [Concomitant]
  3. MIDAZOLAM HYDROCHLORIDE [Concomitant]
  4. FENTANYL CITRATE [Concomitant]
  5. UNASYN [Concomitant]
  6. VANCOMYCIN [Concomitant]
  7. METHYLPREDNISOLONE SODIUM SUCCINATE [Concomitant]
  8. PROPOFOL [Concomitant]
  9. CEFTAZIDIME [Concomitant]
  10. VERAPAMIL HYDROCHLORIDE [Concomitant]
  11. DESLANOSIDE [Concomitant]
  12. INSULIN HUMAN [Concomitant]
  13. AMINOPHYLLINE [Concomitant]

REACTIONS (5)
  - ALANINE AMINOTRANSFERASE INCREASED [None]
  - BLOOD ALKALINE PHOSPHATASE INCREASED [None]
  - BLOOD LACTATE DEHYDROGENASE INCREASED [None]
  - GAMMA-GLUTAMYLTRANSFERASE INCREASED [None]
  - RENAL FAILURE [None]
